FAERS Safety Report 4758025-2 (Version None)
Quarter: 2005Q3

REPORT INFORMATION
  Report Type: 
  Country: None (occurrence: None)
  Receive Date: 20050826
  Receipt Date: 20050525
  Transmission Date: 20060218
  Serious: No
  Sender: FDA-Public Use
  Company Number: WAES 0411USA00545

PATIENT
  Age: 79 Year
  Sex: Female

DRUGS (4)
  1. ZETIA [Suspect]
     Indication: BLOOD CHOLESTEROL INCREASED
     Dosage: 10 MG/QOD/PO
     Route: 048
     Dates: start: 20040101
  2. ZETIA [Suspect]
     Indication: HYPERLIPIDAEMIA
     Dosage: 10 MG/QOD/PO
     Route: 048
     Dates: start: 20040101
  3. DILTIAZEM CD [Concomitant]
  4. LIPITOR [Concomitant]

REACTIONS (10)
  - ALOPECIA [None]
  - AMNESIA [None]
  - BLOOD CHOLESTEROL INCREASED [None]
  - DRY MOUTH [None]
  - DYSGEUSIA [None]
  - GENITAL PRURITUS FEMALE [None]
  - INAPPROPRIATE SCHEDULE OF DRUG ADMINISTRATION [None]
  - PARAESTHESIA ORAL [None]
  - TONGUE DISORDER [None]
  - VAGINAL INFECTION [None]
